FAERS Safety Report 5957011-4 (Version None)
Quarter: 2008Q4

REPORT INFORMATION
  Report Type: 
  Country: None (occurrence: None)
  Receive Date: 20081118
  Receipt Date: 20080818
  Transmission Date: 20090506
  Serious: No
  Sender: FDA-Public Use
  Company Number: A0744484A

PATIENT
  Sex: Female

DRUGS (1)
  1. COREG CR [Suspect]
     Dosage: 20MG UNKNOWN
     Route: 048
     Dates: start: 20080805

REACTIONS (1)
  - BACK PAIN [None]
